FAERS Safety Report 17810403 (Version 1)
Quarter: 2020Q2

REPORT INFORMATION
  Report Type: Spontaneous
  Country: AT (occurrence: AT)
  Receive Date: 20200521
  Receipt Date: 20200521
  Transmission Date: 20200714
  Serious: Yes (Other)
  Sender: FDA-Public Use
  Company Number: AT-TEVA-2020-AT-1237550

PATIENT
  Age: 23 Year
  Sex: Female

DRUGS (1)
  1. TRIPRIM 100 MG - TABLETTEN [Suspect]
     Active Substance: TRIMETHOPRIM
     Dates: start: 20191001, end: 20191001

REACTIONS (2)
  - Angioedema [Unknown]
  - Type I hypersensitivity [Unknown]

NARRATIVE: CASE EVENT DATE: 20191001
